FAERS Safety Report 7388212-9 (Version None)
Quarter: 2011Q1

REPORT INFORMATION
  Report Type: 
  Country: None (occurrence: None)
  Receive Date: 20110324
  Receipt Date: 20110228
  Transmission Date: 20110831
  Serious: Yes (Hospitalization)
  Sender: FDA-Public Use
  Company Number: 006604

PATIENT
  Sex: Male

DRUGS (6)
  1. PREDNISONE [Concomitant]
  2. PENTASA [Concomitant]
  3. CERTOLIZUMAB PEGOL (CERTOLIZUMAB PEGOL) [Suspect]
     Indication: CROHN'S DISEASE
     Dosage: 400 MG 1X2 WEEKS, NR OF DOSES:3 SUBCUTANEOUS 400 MG 1X/MONTH SUBCUTANEOUS
     Route: 058
     Dates: start: 20100216
  4. CERTOLIZUMAB PEGOL (CERTOLIZUMAB PEGOL) [Suspect]
     Indication: CROHN'S DISEASE
     Dosage: 400 MG 1X2 WEEKS, NR OF DOSES:3 SUBCUTANEOUS 400 MG 1X/MONTH SUBCUTANEOUS
     Route: 058
     Dates: start: 20040912, end: 20041229
  5. CERTOLIZUMAB PEGOL (CERTOLIZUMAB PEGOL) [Suspect]
     Indication: CROHN'S DISEASE
     Dosage: 400 MG 1X2 WEEKS, NR OF DOSES:3 SUBCUTANEOUS 400 MG 1X/MONTH SUBCUTANEOUS
     Route: 058
     Dates: start: 20050112
  6. CERTOLIZUMAB PEGOL (CERTOLIZUMAB PEGOL) [Suspect]
     Indication: CROHN'S DISEASE
     Dosage: 400 MG 1X2 WEEKS, NR OF DOSES:3 SUBCUTANEOUS 400 MG 1X/MONTH SUBCUTANEOUS
     Route: 058
     Dates: start: 20040718, end: 20040815

REACTIONS (3)
  - ANAL INFLAMMATION [None]
  - ABDOMINAL ABSCESS [None]
  - SEPSIS [None]
